FAERS Safety Report 4432180-6 (Version None)
Quarter: 2004Q3

REPORT INFORMATION
  Report Type: 
  Country: None (occurrence: None)
  Receive Date: 20040818
  Receipt Date: 20040805
  Transmission Date: 20050211
  Serious: Yes (Hospitalization)
  Sender: FDA-Public Use
  Company Number: 2003019793

PATIENT
  Sex: Female
  Weight: 54.4316 kg

DRUGS (5)
  1. NORVASC [Suspect]
     Indication: HYPERTENSION
     Dosage: 5 MG (1 IN 1D), ORAL
     Route: 048
  2. VISTARIL [Suspect]
     Indication: ILL-DEFINED DISORDER
     Dosage: ORAL
     Route: 048
  3. HYDROXYZINE HCL [Suspect]
     Indication: ILL-DEFINED DISORDER
     Dosage: ORAL
  4. ANTIVERT [Suspect]
     Indication: ILL-DEFINED DISORDER
  5. FAMOTIDINE [Suspect]
     Indication: DYSPEPSIA

REACTIONS (9)
  - DIZZINESS [None]
  - DYSPEPSIA [None]
  - FOOD ALLERGY [None]
  - HOSPITALISATION [None]
  - HYPERSENSITIVITY [None]
  - MALAISE [None]
  - NAUSEA [None]
  - REACTION TO DRUG EXCIPIENT [None]
  - TREMOR [None]
